FAERS Safety Report 5296313-4 (Version None)
Quarter: 2007Q2

REPORT INFORMATION
  Report Type: 
  Country: None (occurrence: None)
  Receive Date: 20070413
  Receipt Date: 20070406
  Transmission Date: 20071010
  Serious: Yes (Hospitalization)
  Sender: FDA-Public Use
  Company Number: BR-ABBOTT-07P-020-0364355-00

PATIENT
  Sex: Male

DRUGS (9)
  1. RITONAVIR [Suspect]
     Indication: HIV INFECTION
     Route: 048
     Dates: start: 20060525, end: 20070322
  2. TIPRANAVIR [Concomitant]
     Indication: HIV INFECTION
     Route: 048
     Dates: start: 20060525, end: 20070322
  3. NORIPURUM [Concomitant]
     Indication: ANAEMIA
     Route: 042
     Dates: start: 20070101
  4. VIREAD [Concomitant]
     Indication: HIV INFECTION
     Route: 048
     Dates: start: 20060525, end: 20070322
  5. LAMIVUDINE [Concomitant]
     Indication: HIV INFECTION
     Route: 048
     Dates: start: 20060525, end: 20070322
  6. ENFUVIRTIDE [Concomitant]
     Indication: HIV INFECTION
     Route: 058
     Dates: start: 20060525, end: 20070322
  7. ERITROPOIETIN [Concomitant]
     Indication: ANAEMIA
  8. PARACETAMOL [Concomitant]
     Indication: DRUG USE FOR UNKNOWN INDICATION
     Route: 048
  9. PARACETAMOL [Concomitant]
     Indication: PAIN

REACTIONS (2)
  - ABDOMINAL DISTENSION [None]
  - ASCITES [None]
